FAERS Safety Report 19153873 (Version 2)
Quarter: 2021Q2

REPORT INFORMATION
  Report Type: Spontaneous
  Country: US (occurrence: US)
  Receive Date: 20210419
  Receipt Date: 20210429
  Transmission Date: 20210717
  Serious: No
  Sender: FDA-Public Use
  Company Number: US-PFIZER INC-2021389047

PATIENT
  Age: 63 Year
  Sex: Female
  Weight: 92.1 kg

DRUGS (32)
  1. LYRICA [Suspect]
     Active Substance: PREGABALIN
     Indication: NEURALGIA
     Dosage: 200 MG, 1X/DAY (QPM)
     Route: 048
  2. BOTULINUM TOXIN TYPE A [Suspect]
     Active Substance: BOTULINUM TOXIN TYPE A
     Dosage: UNK UNK, SINGLE (6.25 UNITS)
     Dates: start: 20210318, end: 20210318
  3. BOTULINUM TOXIN TYPE A [Suspect]
     Active Substance: BOTULINUM TOXIN TYPE A
     Dosage: UNK UNK, SINGLE (6.25 UNITS)
     Dates: start: 20210318, end: 20210318
  4. BOTULINUM TOXIN TYPE A [Suspect]
     Active Substance: BOTULINUM TOXIN TYPE A
     Dosage: UNK UNK, SINGLE (6.25 UNITS)
     Dates: start: 20210318, end: 20210318
  5. IRON [Suspect]
     Active Substance: IRON
     Dosage: UNK
  6. GABAPENTIN. [Concomitant]
     Active Substance: GABAPENTIN
     Dosage: UNK
  7. TOBRADEX [Concomitant]
     Active Substance: DEXAMETHASONE\TOBRAMYCIN
     Dosage: UNK
  8. VITAMIN B12 [Concomitant]
     Active Substance: CYANOCOBALAMIN
     Dosage: 1000 UG, 1X/DAY
  9. TRAMADOL. [Concomitant]
     Active Substance: TRAMADOL
     Dosage: UNK
  10. LYRICA [Suspect]
     Active Substance: PREGABALIN
     Indication: RESTLESS LEGS SYNDROME
     Dosage: 225 MG, 1X/DAY (QPM)
     Route: 048
  11. BOTULINUM TOXIN TYPE A [Suspect]
     Active Substance: BOTULINUM TOXIN TYPE A
     Dosage: UNK UNK, SINGLE (10 UNITS)
     Dates: start: 20210318, end: 20210318
  12. VITRON?C [Concomitant]
     Active Substance: ASCORBIC ACID\IRON
     Dosage: UNK
  13. BOTULINUM TOXIN TYPE A [Suspect]
     Active Substance: BOTULINUM TOXIN TYPE A
     Dosage: UNK UNK, SINGLE (6.25 UNITS)
     Dates: start: 20210318, end: 20210318
  14. BOTULINUM TOXIN TYPE A [Suspect]
     Active Substance: BOTULINUM TOXIN TYPE A
     Dosage: UNK UNK, SINGLE (5 UNITS)
     Dates: start: 20210318, end: 20210318
  15. LORAZEPAM. [Concomitant]
     Active Substance: LORAZEPAM
     Dosage: 1 MG, AS NEEDED
  16. SINGULAIR [Concomitant]
     Active Substance: MONTELUKAST SODIUM
     Dosage: UNK
  17. BOTULINUM TOXIN TYPE A [Suspect]
     Active Substance: BOTULINUM TOXIN TYPE A
     Dosage: UNK UNK, SINGLE (6.25 UNITS)
     Dates: start: 20210318, end: 20210318
  18. NEXIUM [Concomitant]
     Active Substance: ESOMEPRAZOLE MAGNESIUM
     Dosage: UNK
  19. OXYCODONE [Concomitant]
     Active Substance: OXYCODONE
     Dosage: UNK
  20. BOTULINUM TOXIN TYPE A [Suspect]
     Active Substance: BOTULINUM TOXIN TYPE A
     Indication: MEIGE^S SYNDROME
     Dosage: UNK UNK, SINGLE (10 UNITS)
     Dates: start: 20210318, end: 20210318
  21. BOTULINUM TOXIN TYPE A [Suspect]
     Active Substance: BOTULINUM TOXIN TYPE A
     Dosage: UNK UNK, SINGLE (6.25 UNITS)
     Dates: start: 20210318, end: 20210318
  22. BOTULINUM TOXIN TYPE A [Suspect]
     Active Substance: BOTULINUM TOXIN TYPE A
     Dosage: UNK UNK, SINGLE (6.25 UNITS)
     Dates: start: 20210318, end: 20210318
  23. BOTULINUM TOXIN TYPE A [Suspect]
     Active Substance: BOTULINUM TOXIN TYPE A
     Dosage: UNK UNK, SINGLE (5 UNITS)
     Dates: start: 20210318, end: 20210318
  24. LEVOTHYROXINE. [Concomitant]
     Active Substance: LEVOTHYROXINE
     Dosage: UNK
  25. BOTULINUM TOXIN TYPE A [Suspect]
     Active Substance: BOTULINUM TOXIN TYPE A
     Indication: BLEPHAROSPASM
     Dosage: UNK UNK, SINGLE
     Dates: start: 2006, end: 2006
  26. BOTULINUM TOXIN TYPE A [Suspect]
     Active Substance: BOTULINUM TOXIN TYPE A
     Dosage: UNK UNK, SINGLE (6.25 UNITS)
     Dates: start: 20210318, end: 20210318
  27. BOTULINUM TOXIN TYPE A [Suspect]
     Active Substance: BOTULINUM TOXIN TYPE A
     Dosage: UNK UNK, SINGLE (7.5 UNITS)
     Dates: start: 20210318, end: 20210318
  28. ATIVAN [Concomitant]
     Active Substance: LORAZEPAM
     Dosage: UNK, AS NEEDED
  29. LYRICA [Suspect]
     Active Substance: PREGABALIN
     Indication: BURNING SENSATION
  30. BOTULINUM TOXIN TYPE A [Suspect]
     Active Substance: BOTULINUM TOXIN TYPE A
     Dosage: UNK UNK, SINGLE (10 UNITS)
     Dates: start: 20210318, end: 20210318
  31. MAGNESIUM OXIDE. [Concomitant]
     Active Substance: MAGNESIUM OXIDE
     Dosage: UNK
  32. ZINC. [Concomitant]
     Active Substance: ZINC
     Dosage: UNK

REACTIONS (6)
  - Obesity [Unknown]
  - Glycosylated haemoglobin decreased [Unknown]
  - Therapeutic product effect incomplete [Unknown]
  - Dry eye [Unknown]
  - Muscle twitching [Unknown]
  - Vision blurred [Recovering/Resolving]
